FAERS Safety Report 8184028-4 (Version None)
Quarter: 2012Q1

REPORT INFORMATION
  Report Type: 
  Country: None (occurrence: None)
  Receive Date: 20120305
  Receipt Date: 20120223
  Transmission Date: 20120608
  Serious: Yes (Other)
  Sender: FDA-Public Use
  Company Number: US-ROCHE-784885

PATIENT
  Sex: Male
  Weight: 83.99 kg

DRUGS (6)
  1. METHADON HCL TAB [Concomitant]
     Indication: CYSTITIS INTERSTITIAL
  2. LEVITRA [Concomitant]
     Indication: ERECTILE DYSFUNCTION
  3. ACCUTANE [Suspect]
     Route: 048
  4. AMNESTEEM [Suspect]
     Indication: ACNE
     Route: 065
     Dates: start: 20090616, end: 20090701
  5. SOTRET [Suspect]
     Indication: ACNE
     Route: 065
     Dates: start: 20090220, end: 20090601
  6. ACCUTANE [Suspect]
     Indication: ACNE
     Dosage: IN 1990S
     Route: 048

REACTIONS (7)
  - ANXIETY [None]
  - DEPRESSION [None]
  - ARTHRITIS [None]
  - INFLAMMATORY BOWEL DISEASE [None]
  - DRY SKIN [None]
  - COLITIS ULCERATIVE [None]
  - CROHN'S DISEASE [None]
